FAERS Safety Report 25096186 (Version 1)
Quarter: 2025Q1

REPORT INFORMATION
  Report Type: Spontaneous
  Country: US (occurrence: US)
  Receive Date: 20250319
  Receipt Date: 20250319
  Transmission Date: 20250408
  Serious: No
  Sender: TAKEDA
  Company Number: US-TAKEDA-2025TUS026235

PATIENT
  Sex: Female

DRUGS (4)
  1. EOHILIA [Suspect]
     Active Substance: BUDESONIDE
     Indication: Eosinophilic oesophagitis
     Dosage: 2 MILLIGRAM, BID
     Dates: start: 20241124, end: 202501
  2. EOHILIA [Suspect]
     Active Substance: BUDESONIDE
     Dosage: 1 MILLIGRAM, QD
     Dates: start: 20250131
  3. OMEPRAZOLE [Concomitant]
     Active Substance: OMEPRAZOLE
     Dosage: 40 MILLIGRAM, QD
  4. FAMOTIDINE [Concomitant]
     Active Substance: FAMOTIDINE

REACTIONS (3)
  - Upper respiratory tract infection [Unknown]
  - Laryngitis [Unknown]
  - Cough [Unknown]
